FAERS Safety Report 25383245 (Version 1)
Quarter: 2025Q2

REPORT INFORMATION
  Report Type: Report from Study
  Country: US (occurrence: US)
  Receive Date: 20250602
  Receipt Date: 20250602
  Transmission Date: 20250717
  Serious: Yes (Hospitalization)
  Sender: RECORDATI
  Company Number: US-ORPHANEU-2025003711

PATIENT
  Sex: Male
  Weight: 123.36 kg

DRUGS (2)
  1. ISTURISA [Suspect]
     Active Substance: OSILODROSTAT PHOSPHATE
     Indication: Cushing^s syndrome
     Dosage: 2 MG, BID (STARTER)
     Route: 048
     Dates: end: 20250424
  2. ISTURISA [Suspect]
     Active Substance: OSILODROSTAT PHOSPHATE
     Dosage: 3 MG, BID
     Route: 048
     Dates: start: 2025

REACTIONS (1)
  - Pulmonary mass [Recovering/Resolving]
